FAERS Safety Report 11433276 (Version 1)
Quarter: 2015Q3

REPORT INFORMATION
  Report Type: Spontaneous
  Country: US (occurrence: US)
  Receive Date: 20150830
  Receipt Date: 20150830
  Transmission Date: 20151125
  Serious: Yes (Hospitalization)
  Sender: FDA-Public Use
  Company Number: US-TEVA-589376USA

PATIENT
  Age: 76 Year
  Sex: Female

DRUGS (3)
  1. OXALIPLATIN INJECTION [Suspect]
     Active Substance: OXALIPLATIN
     Indication: ADENOCARCINOMA OF COLON
     Route: 065
  2. BEVACIZUMAB [Suspect]
     Active Substance: BEVACIZUMAB
     Indication: ADENOCARCINOMA OF COLON
     Dosage: INFUSION
     Route: 050
  3. CAPECITABINE. [Suspect]
     Active Substance: CAPECITABINE
     Indication: ADENOCARCINOMA OF COLON
     Route: 065

REACTIONS (3)
  - Evans syndrome [Recovered/Resolved]
  - Autoimmune haemolytic anaemia [Recovered/Resolved]
  - Disseminated intravascular coagulation [Recovered/Resolved]
